FAERS Safety Report 19767048 (Version 2)
Quarter: 2021Q3

REPORT INFORMATION
  Report Type: Spontaneous
  Country: CN (occurrence: CN)
  Receive Date: 20210830
  Receipt Date: 20210910
  Transmission Date: 20211014
  Serious: Yes (Other)
  Sender: FDA-Public Use
  Company Number: CN-ALLERGAN-2130561US

PATIENT
  Sex: Male

DRUGS (2)
  1. CEFTAZIDIME;AVIBACTAM ? BP [Suspect]
     Active Substance: AVIBACTAM SODIUM\CEFTAZIDIME
     Indication: PYREXIA
     Dosage: UNK
     Dates: start: 202107
  2. CASPOFUNGIN [Suspect]
     Active Substance: CASPOFUNGIN
     Indication: FUNGAL INFECTION
     Dosage: UNK

REACTIONS (2)
  - Off label use [Unknown]
  - Heart injury [Unknown]
